FAERS Safety Report 21361477 (Version 1)
Quarter: 2022Q3

REPORT INFORMATION
  Report Type: Spontaneous
  Country: None (occurrence: PL)
  Receive Date: 20220921
  Receipt Date: 20220921
  Transmission Date: 20221027
  Serious: Yes (Death, Hospitalization, Other)
  Sender: FDA-Public Use
  Company Number: PL-B.Braun Medical Inc.-2133066

PATIENT
  Age: 64 Year
  Sex: Male
  Weight: 84 kg

DRUGS (2)
  1. ACETAMINOPHEN [Suspect]
     Active Substance: ACETAMINOPHEN
     Indication: Pyrexia
     Dates: start: 20210403, end: 20210410
  2. VAXZEVRIA [Suspect]
     Active Substance: AZD-1222

REACTIONS (6)
  - Vomiting [Fatal]
  - Diarrhoea [Fatal]
  - Pyrexia [Fatal]
  - COVID-19 pneumonia [Fatal]
  - Thrombosis [Fatal]
  - Asthenia [Fatal]
